FAERS Safety Report 5652612-5 (Version None)
Quarter: 2008Q1

REPORT INFORMATION
  Report Type: 
  Country: None (occurrence: None)
  Receive Date: 20080305
  Receipt Date: 20080305
  Transmission Date: 20080703
  Serious: Yes (Other)
  Sender: FDA-Public Use
  Company Number: None

PATIENT
  Sex: Female

DRUGS (2)
  1. VANCOMYCIN [Suspect]
     Indication: INFECTION
     Dosage: 1.5 GM Q12H IV
     Route: 042
     Dates: start: 20080210, end: 20080210
  2. KETOROLAC [Suspect]
     Indication: PAIN
     Dosage: 30 MG Q6H IV
     Route: 042
     Dates: start: 20080210, end: 20080210

REACTIONS (5)
  - DEHYDRATION [None]
  - NAUSEA [None]
  - NEPHRITIS ALLERGIC [None]
  - POST PROCEDURAL COMPLICATION [None]
  - PROCEDURAL VOMITING [None]
